FAERS Safety Report 7485756-6 (Version None)
Quarter: 2011Q2

REPORT INFORMATION
  Report Type: 
  Country: None (occurrence: None)
  Receive Date: 20110517
  Receipt Date: 20110504
  Transmission Date: 20111010
  Serious: Yes (Hospitalization)
  Sender: FDA-Public Use
  Company Number: GB-JNJFOC-20101102500

PATIENT
  Age: 20 Year
  Sex: Male

DRUGS (2)
  1. ACETAMINOPHEN [Concomitant]
     Route: 065
  2. METHYLPHENIDATE HCL [Suspect]
     Indication: PRODUCT USED FOR UNKNOWN INDICATION
     Route: 048

REACTIONS (1)
  - INTENTIONAL OVERDOSE [None]
